FAERS Safety Report 9231510 (Version 1)
Quarter: 2013Q2

REPORT INFORMATION
  Report Type: Report from Study
  Country: DE (occurrence: DE)
  Receive Date: 20130415
  Receipt Date: 20130415
  Transmission Date: 20140414
  Serious: Yes (Death)
  Sender: FDA-Public Use
  Company Number: DE-GLAXOSMITHKLINE-B0868472B

PATIENT
  Sex: Male

DRUGS (13)
  1. PAZOPANIB [Suspect]
     Indication: GASTRIC CANCER
  2. 5-FU [Suspect]
     Indication: GASTRIC CANCER
  3. OXALIPLATIN [Suspect]
     Indication: GASTRIC CANCER
  4. LEUCOVORIN [Suspect]
     Indication: GASTRIC CANCER
  5. METFORMIN [Concomitant]
     Dosage: 1000MG TWICE PER DAY
  6. ASS [Concomitant]
  7. SIMVASTATIN [Concomitant]
  8. RAMIPRIL [Concomitant]
  9. SPIRIVA [Concomitant]
  10. ONBREZ [Concomitant]
  11. PANTOZOL [Concomitant]
     Dosage: 20UNIT PER DAY
  12. FENTANYL [Concomitant]
  13. MOVICOL [Concomitant]

REACTIONS (1)
  - Death [Fatal]
